FAERS Safety Report 7021414-X (Version None)
Quarter: 2010Q3

REPORT INFORMATION
  Report Type: 
  Country: None (occurrence: None)
  Receive Date: 20100929
  Receipt Date: 20100917
  Transmission Date: 20110219
  Serious: Yes (Hospitalization, Disabling)
  Sender: FDA-Public Use
  Company Number: US-ELI_LILLY_AND_COMPANY-US201009006287

PATIENT
  Sex: Female

DRUGS (12)
  1. FORTEO [Suspect]
     Indication: OSTEOPOROSIS
     Dosage: 20 UG, DAILY (1/D)
  2. SYNTHROID [Concomitant]
  3. OXYBUTYNIN [Concomitant]
  4. DIAZEPAM [Concomitant]
  5. MULTI-VITAMIN [Concomitant]
  6. VITAMIN D [Concomitant]
  7. CALCIUM W/VITAMIN D NOS [Concomitant]
  8. ASPIRIN [Concomitant]
  9. DARVOCET [Concomitant]
  10. MOTRIN [Concomitant]
  11. SIMVASTATIN [Concomitant]
  12. DIDRONEL [Concomitant]

REACTIONS (11)
  - ABASIA [None]
  - ARTHRITIS [None]
  - BACK PAIN [None]
  - BURNING SENSATION [None]
  - DIARRHOEA [None]
  - HEART RATE DECREASED [None]
  - HYPOAESTHESIA [None]
  - MUSCLE SPASMS [None]
  - NAUSEA [None]
  - PAIN IN EXTREMITY [None]
  - VOMITING [None]
